FAERS Safety Report 26119181 (Version 1)
Quarter: 2025Q4

REPORT INFORMATION
  Report Type: Spontaneous
  Country: EU (occurrence: EU)
  Receive Date: 20251204
  Receipt Date: 20251204
  Transmission Date: 20260118
  Serious: Yes (Hospitalization, Other)
  Sender: ALK-ABELLO
  Company Number: None

PATIENT

DRUGS (2)
  1. GRAZAX [Suspect]
     Active Substance: PHLEUM PRATENSE POLLEN
     Indication: Rhinitis allergic
     Dosage: 1 DOSAGE FORM
     Route: 060
     Dates: start: 201903, end: 202112
  2. GRAZAX [Suspect]
     Active Substance: PHLEUM PRATENSE POLLEN
     Dosage: 1 DOSAGE FORM
     Route: 060

REACTIONS (11)
  - Oesophageal stenosis [Recovered/Resolved]
  - Eosinophilic oesophagitis [Recovered/Resolved]
  - Hypoventilation [Unknown]
  - Oesophageal pain [Recovered/Resolved]
  - Seasonal allergy [Unknown]
  - Mite allergy [Unknown]
  - Milk allergy [Unknown]
  - Food allergy [Unknown]
  - Dysphagia [Unknown]
  - Dyspnoea [Unknown]
  - Weight decreased [Unknown]

NARRATIVE: CASE EVENT DATE: 20200101
